FAERS Safety Report 21632266 (Version 1)
Quarter: 2022Q4

REPORT INFORMATION
  Report Type: Spontaneous
  Country: TR (occurrence: TR)
  Receive Date: 20221123
  Receipt Date: 20221123
  Transmission Date: 20230112
  Serious: Yes (Hospitalization, Other)
  Sender: FDA-Public Use
  Company Number: TR-ALKEM LABORATORIES LIMITED-TR-ALKEM-2022-12529

PATIENT
  Age: 5 Year
  Sex: Female

DRUGS (1)
  1. COLCHICINE [Suspect]
     Active Substance: COLCHICINE
     Indication: Familial mediterranean fever
     Dosage: 1 MILLIGRAM, QD
     Route: 065

REACTIONS (10)
  - Leukopenia [Unknown]
  - Overdose [Unknown]
  - Toxicity to various agents [Unknown]
  - Gastroenteritis [Unknown]
  - Pyrexia [Unknown]
  - Alopecia [Unknown]
  - Hypomagnesaemia [Unknown]
  - Hyponatraemia [Unknown]
  - Accidental exposure to product by child [Unknown]
  - Liver function test increased [Unknown]
